FAERS Safety Report 5117876-5 (Version None)
Quarter: 2006Q3

REPORT INFORMATION
  Report Type: 
  Country: None (occurrence: None)
  Receive Date: 20060926
  Receipt Date: 20060914
  Transmission Date: 20061208
  Serious: Yes (Hospitalization)
  Sender: FDA-Public Use
  Company Number: 2006111454

PATIENT
  Age: 63 Year
  Sex: Male

DRUGS (3)
  1. FLUCONAZOLE [Suspect]
     Indication: URINARY TRACT INFECTION
     Dosage: ORAL
     Route: 048
     Dates: start: 20060506, end: 20060528
  2. CIPROFLOXACIN [Suspect]
     Indication: URINARY TRACT INFECTION
     Dosage: ORAL
     Route: 048
     Dates: start: 20060506, end: 20060528
  3. LOVENOX [Suspect]
     Indication: COLECTOMY
     Dosage: SUBCUTANEOUS
     Route: 058
     Dates: start: 20060301, end: 20060501

REACTIONS (5)
  - BLOOD CREATINE INCREASED [None]
  - CONDITION AGGRAVATED [None]
  - RENAL FAILURE [None]
  - RENAL FAILURE ACUTE [None]
  - THROMBOCYTOPENIA [None]
